FAERS Safety Report 23735401 (Version 1)
Quarter: 2024Q2

REPORT INFORMATION
  Report Type: Report from Study
  Country: US (occurrence: US)
  Receive Date: 20240412
  Receipt Date: 20240412
  Transmission Date: 20240716
  Serious: Yes (Hospitalization, Other)
  Sender: FDA-Public Use
  Company Number: US-BIOVITRUM-2024-US-005643

PATIENT
  Age: 40 Year
  Sex: Male

DRUGS (2)
  1. ANAKINRA [Suspect]
     Active Substance: ANAKINRA
     Indication: Still^s disease
     Dosage: DAILY
  2. SARILUMAB [Suspect]
     Active Substance: SARILUMAB
     Indication: Product used for unknown indication

REACTIONS (2)
  - Off label use [Unknown]
  - Haemophagocytic lymphohistiocytosis [Recovered/Resolved]
